FAERS Safety Report 12755975 (Version 1)
Quarter: 2016Q3

REPORT INFORMATION
  Report Type: Spontaneous
  Country: DE (occurrence: DE)
  Receive Date: 20160916
  Receipt Date: 20160916
  Transmission Date: 20161109
  Serious: Yes (Other)
  Sender: FDA-Public Use
  Company Number: GXKR2016DE002107

PATIENT
  Sex: Female
  Weight: 76 kg

DRUGS (1)
  1. NEOTAXAN [Suspect]
     Active Substance: PACLITAXEL
     Indication: BREAST CANCER
     Dosage: 144 MG, UNK
     Route: 042
     Dates: start: 20151223, end: 20160113

REACTIONS (1)
  - Eczema [Unknown]

NARRATIVE: CASE EVENT DATE: 20160113
